FAERS Safety Report 5655255-2 (Version None)
Quarter: 2008Q1

REPORT INFORMATION
  Report Type: 
  Country: None (occurrence: None)
  Receive Date: 20080307
  Receipt Date: 20080227
  Transmission Date: 20080703
  Serious: Yes (Other)
  Sender: FDA-Public Use
  Company Number: B0499823A

PATIENT
  Age: 78 Year
  Sex: Male
  Weight: 72 kg

DRUGS (5)
  1. AVANDAMET [Suspect]
     Dosage: 3TAB PER DAY
     Route: 048
     Dates: start: 20070501
  2. HEMIGOXINE [Concomitant]
     Dosage: 1UNIT PER DAY
     Route: 065
  3. LASILIX [Concomitant]
     Dosage: 1UNIT PER DAY
     Route: 065
  4. DETENSIEL [Concomitant]
     Dosage: 1UNIT PER DAY
     Route: 065
  5. PREVISCAN [Concomitant]
     Dosage: 1UNIT PER DAY
     Route: 065

REACTIONS (2)
  - ASTHENIA [None]
  - NORMOCHROMIC NORMOCYTIC ANAEMIA [None]
